FAERS Safety Report 9890379 (Version 1)
Quarter: 2014Q1

REPORT INFORMATION
  Report Type: Spontaneous
  Country: US (occurrence: None)
  Receive Date: 20140210
  Receipt Date: 20140210
  Transmission Date: 20141002
  Serious: Yes (Death)
  Sender: FDA-Public Use
  Company Number: None

PATIENT
  Age: 62 Year
  Sex: Male
  Weight: 113.85 kg

DRUGS (12)
  1. TESTOSTERONE CIPIONATE [Suspect]
     Indication: HYPOGONADISM
     Dosage: 1.5CC ?EVERY 2 WEEKS?INTRAMUSCULAR
     Route: 030
     Dates: start: 20120911, end: 20121125
  2. TESTOSTERONE CIPIONATE [Suspect]
     Indication: FATIGUE
     Dosage: 1.5CC ?EVERY 2 WEEKS?INTRAMUSCULAR
     Route: 030
     Dates: start: 20120911, end: 20121125
  3. TESTOSTERONE CIPIONATE [Suspect]
     Indication: DEPRESSION
     Dosage: 1.5CC ?EVERY 2 WEEKS?INTRAMUSCULAR
     Route: 030
     Dates: start: 20120911, end: 20121125
  4. METFORMIN [Concomitant]
  5. LOVASTAT [Concomitant]
  6. LOSARTAN [Concomitant]
  7. GLIPIZIDE [Concomitant]
  8. BUPROPION [Concomitant]
  9. ASPIRIN [Concomitant]
  10. AMLODIPINE [Concomitant]
  11. AMILORIDE/HCTZ [Concomitant]
  12. FLUOXETINE [Concomitant]

REACTIONS (1)
  - Myocardial infarction [None]
